FAERS Safety Report 5929238-9 (Version None)
Quarter: 2008Q4

REPORT INFORMATION
  Report Type: 
  Country: None (occurrence: None)
  Receive Date: 20081023
  Receipt Date: 20081023
  Transmission Date: 20090506
  Serious: No
  Sender: FDA-Public Use
  Company Number: None

PATIENT
  Age: 13 Year
  Sex: Male
  Weight: 77.1115 kg

DRUGS (1)
  1. MIRALAX [Suspect]
     Indication: CONSTIPATION
     Dosage: 1 CAPFUL -17 GRAMS- 2 X DAY PO
     Route: 048
     Dates: start: 20081016, end: 20081021

REACTIONS (8)
  - DIARRHOEA [None]
  - IRRITABILITY [None]
  - MALAISE [None]
  - NAUSEA [None]
  - POLYDIPSIA [None]
  - RASH [None]
  - SOMNOLENCE [None]
  - THIRST [None]
